FAERS Safety Report 23847494 (Version 3)
Quarter: 2024Q3

REPORT INFORMATION
  Report Type: Spontaneous
  Country: FR (occurrence: FR)
  Receive Date: 20240513
  Receipt Date: 20240715
  Transmission Date: 20241017
  Serious: Yes (Hospitalization)
  Sender: ROCHE
  Company Number: None

PATIENT
  Age: 30 Year
  Sex: Female
  Weight: 57.0 kg

DRUGS (3)
  1. OCREVUS [Suspect]
     Active Substance: OCRELIZUMAB
     Indication: Relapsing-remitting multiple sclerosis
     Route: 065
     Dates: start: 202108, end: 20240304
  2. PANTOPRAZOLE [Concomitant]
     Active Substance: PANTOPRAZOLE
  3. EBASTINE [Concomitant]
     Active Substance: EBASTINE

REACTIONS (2)
  - Meningitis enteroviral [Recovered/Resolved]
  - Coxsackie myocarditis [Recovered/Resolved with Sequelae]

NARRATIVE: CASE EVENT DATE: 20240315
